FAERS Safety Report 9784742 (Version 1)
Quarter: 2013Q4

REPORT INFORMATION
  Report Type: Report from Study
  Country: GB (occurrence: GB)
  Receive Date: 20131227
  Receipt Date: 20131227
  Transmission Date: 20140711
  Serious: Yes (Death, Other)
  Sender: FDA-Public Use
  Company Number: GB-ROCHE-1325032

PATIENT
  Sex: 0

DRUGS (1)
  1. CAPECITABINE [Suspect]
     Indication: PANCREATIC CARCINOMA
     Route: 065

REACTIONS (3)
  - Disease progression [Fatal]
  - Malignant ascites [Recovered/Resolved with Sequelae]
  - Abdominal discomfort [Recovered/Resolved with Sequelae]
